FAERS Safety Report 16404573 (Version 2)
Quarter: 2019Q4

REPORT INFORMATION
  Report Type: Report from Study
  Country: US (occurrence: US)
  Receive Date: 20190607
  Receipt Date: 20191127
  Transmission Date: 20200122
  Serious: Yes (Hospitalization)
  Sender: FDA-Public Use
  Company Number: US-ACTELION-A-US2017-151734

PATIENT
  Age: 50 Year
  Sex: Female
  Weight: 94.79 kg

DRUGS (2)
  1. REMODULIN [Concomitant]
     Active Substance: TREPROSTINIL
  2. OPSUMIT [Suspect]
     Active Substance: MACITENTAN
     Indication: PULMONARY HYPERTENSION
     Dosage: 10 MG, QD
     Route: 048
     Dates: start: 201703

REACTIONS (12)
  - Palpitations [Unknown]
  - Presyncope [Unknown]
  - Catheter site pain [Unknown]
  - Device dislocation [Unknown]
  - Oxygen saturation decreased [Unknown]
  - Hypoaesthesia [Unknown]
  - Decreased appetite [Unknown]
  - Headache [Unknown]
  - Dyspnoea [Unknown]
  - Amenorrhoea [Unknown]
  - Device occlusion [Unknown]
  - Feeling abnormal [Recovered/Resolved]

NARRATIVE: CASE EVENT DATE: 201703
